FAERS Safety Report 7001739-4 (Version None)
Quarter: 2010Q3

REPORT INFORMATION
  Report Type: 
  Country: None (occurrence: None)
  Receive Date: 20100920
  Receipt Date: 20100917
  Transmission Date: 20110219
  Serious: Yes (Hospitalization)
  Sender: FDA-Public Use
  Company Number: GXKR2009DE05536

PATIENT
  Age: 79 Year
  Sex: Female
  Weight: 83 kg

DRUGS (9)
  1. BISOPROLOL (NGX) [Interacting]
     Indication: TACHYARRHYTHMIA
     Dosage: 1.25 MG, QD
     Route: 048
     Dates: start: 20040401, end: 20081005
  2. DIGITOXIN TAB [Interacting]
     Indication: TACHYARRHYTHMIA
     Dosage: 0.07 MG, QD
     Route: 048
     Dates: start: 20040401, end: 20081005
  3. FUROSEMIDE (NGX) [Suspect]
     Dosage: 40 MG, BID
     Route: 048
     Dates: start: 20070101, end: 20081005
  4. CAPTOPRIL [Concomitant]
     Indication: HYPERTENSION
     Dosage: 12.5 MG, TID
     Route: 048
  5. FALITHROM ^HEXAL^ [Concomitant]
     Indication: ATRIAL FIBRILLATION
     Dosage: UNK
     Route: 048
     Dates: start: 20050101, end: 20081005
  6. LANTUS [Concomitant]
     Indication: TYPE 2 DIABETES MELLITUS
     Dosage: UNK
     Route: 058
     Dates: start: 20080101
  7. ALLOPURINOL [Concomitant]
  8. AMLODIPINE [Concomitant]
  9. CARBAMAZEPINE SANDOZ [Concomitant]

REACTIONS (3)
  - BRADYARRHYTHMIA [None]
  - HYPOKALAEMIA [None]
  - HYPONATRAEMIA [None]
